FAERS Safety Report 22534597 (Version 1)
Quarter: 2023Q2

REPORT INFORMATION
  Report Type: Spontaneous
  Country: BR (occurrence: BR)
  Receive Date: 20230608
  Receipt Date: 20230608
  Transmission Date: 20230722
  Serious: Yes (Hospitalization, Other)
  Sender: FDA-Public Use
  Company Number: BR-UCBSA-2023028770

PATIENT
  Age: 40 Year
  Sex: Female

DRUGS (8)
  1. KEPPRA [Suspect]
     Active Substance: LEVETIRACETAM
     Indication: Seizure
     Dosage: 250 MILLIGRAM, 4X/DAY (QID)
     Route: 048
     Dates: start: 20230505
  2. KEPPRA [Suspect]
     Active Substance: LEVETIRACETAM
     Dosage: 250 MILLIGRAM, 2X/DAY (BID)
     Route: 048
  3. VENLAFAXINE [Concomitant]
     Active Substance: VENLAFAXINE HYDROCHLORIDE
     Indication: Product used for unknown indication
     Dosage: 150 MILLIGRAM, ONCE DAILY (QD)
     Dates: start: 202101
  4. RAMIPRIL [Concomitant]
     Active Substance: RAMIPRIL
     Indication: Discomfort
     Dosage: 10 MILLIGRAM
     Dates: start: 201206
  5. HYDROCHLOROTHIAZIDE [Concomitant]
     Active Substance: HYDROCHLOROTHIAZIDE
     Indication: Product used for unknown indication
     Dosage: 25 MILLIGRAM, ONCE DAILY (QD)
     Dates: start: 201206
  6. DEXAMETHASONE [Concomitant]
     Active Substance: DEXAMETHASONE
     Indication: Brain cancer metastatic
     Dosage: 4 MILLIGRAM, 2 PILL
     Dates: start: 20230505
  7. DAPAGLIFLOZIN [Concomitant]
     Active Substance: DAPAGLIFLOZIN
     Indication: Blood glucose
     Dosage: 10 MILLIGRAM, ONCE DAILY (QD)
     Dates: start: 20220514
  8. RIVOTRIL [Concomitant]
     Active Substance: CLONAZEPAM
     Indication: Sleep disorder
     Dosage: 0.5 MILLIGRAM, ONCE DAILY (QD)
     Dates: start: 20230517

REACTIONS (1)
  - Brain cancer metastatic [Unknown]

NARRATIVE: CASE EVENT DATE: 20230506
